FAERS Safety Report 13914288 (Version 1)
Quarter: 2017Q3

REPORT INFORMATION
  Report Type: Spontaneous
  Country: US (occurrence: US)
  Receive Date: 20170828
  Receipt Date: 20170828
  Transmission Date: 20171127
  Serious: No
  Sender: FDA-Public Use
  Company Number: US-ROCHE-1138592

PATIENT
  Sex: Male
  Weight: 42.63 kg

DRUGS (10)
  1. NEPHRO-VITE [Concomitant]
     Route: 065
  2. ERYTHROPOIETIN [Concomitant]
     Active Substance: ERYTHROPOIETIN
     Route: 065
  3. ERYTHROPOIETIN [Concomitant]
     Active Substance: ERYTHROPOIETIN
     Route: 065
  4. PHOSLO [Concomitant]
     Active Substance: CALCIUM ACETATE
     Dosage: 2 WITH MEALS
     Route: 065
  5. ROCALTROL [Concomitant]
     Active Substance: CALCITRIOL
     Route: 065
  6. NUTROPIN [Suspect]
     Active Substance: SOMATROPIN
     Indication: PRODUCT USED FOR UNKNOWN INDICATION
     Dosage: 1 CC
     Route: 058
  7. FE SULFATE [Concomitant]
     Dosage: POSSIBLY 3 IN A DAY
     Route: 065
  8. COLACE [Concomitant]
     Active Substance: DOCUSATE SODIUM
     Route: 065
  9. ROCALTROL [Concomitant]
     Active Substance: CALCITRIOL
     Route: 065
  10. NORVASC [Concomitant]
     Active Substance: AMLODIPINE BESYLATE
     Route: 065

REACTIONS (2)
  - Osteopenia [Unknown]
  - Nasopharyngitis [Unknown]
